FAERS Safety Report 17361933 (Version 1)
Quarter: 2020Q1

REPORT INFORMATION
  Report Type: Spontaneous
  Country: US (occurrence: US)
  Receive Date: 20200131
  Receipt Date: 20200131
  Transmission Date: 20200409
  Serious: Yes (Other)
  Sender: FDA-Public Use
  Company Number: None

PATIENT
  Age: 57 Year
  Sex: Female
  Weight: 134.55 kg

DRUGS (1)
  1. MESALAMINE. [Suspect]
     Active Substance: MESALAMINE
     Indication: CROHN^S DISEASE
     Route: 048
     Dates: start: 20190131, end: 20191104

REACTIONS (16)
  - Hernia [None]
  - Therapeutic response changed [None]
  - Crohn^s disease [None]
  - General physical health deterioration [None]
  - Pain [None]
  - Anxiety [None]
  - Diarrhoea [None]
  - Gastrointestinal haemorrhage [None]
  - Depression [None]
  - Treatment failure [None]
  - Product substitution issue [None]
  - Insurance issue [None]
  - Abdominal discomfort [None]
  - Fatigue [None]
  - Sleep disorder [None]
  - Condition aggravated [None]

NARRATIVE: CASE EVENT DATE: 20191230
